FAERS Safety Report 16198152 (Version 1)
Quarter: 2019Q2

REPORT INFORMATION
  Report Type: Spontaneous
  Country: FR (occurrence: FR)
  Receive Date: 20190415
  Receipt Date: 20190415
  Transmission Date: 20190711
  Serious: Yes (Hospitalization)
  Sender: FDA-Public Use
  Company Number: FR-BEH-2012033115

PATIENT
  Age: 5 Year
  Sex: Male
  Weight: 19.5 kg

DRUGS (1)
  1. PRIVIGEN [Suspect]
     Active Substance: HUMAN IMMUNOGLOBULIN G
     Indication: PURPURA
     Dosage: UNK
     Route: 042
     Dates: start: 20120623, end: 20120623

REACTIONS (2)
  - Pyrexia [Recovered/Resolved]
  - Meningeal disorder [Recovered/Resolved]

NARRATIVE: CASE EVENT DATE: 20120624
